FAERS Safety Report 4296402-7 (Version None)
Quarter: 2004Q1

REPORT INFORMATION
  Report Type: 
  Country: None (occurrence: None)
  Receive Date: 20040213
  Receipt Date: 20040213
  Transmission Date: 20041129
  Serious: Yes (Hospitalization)
  Sender: FDA-Public Use
  Company Number: None

PATIENT

DRUGS (11)
  1. DIGOXIN [Suspect]
     Indication: ATRIAL FIBRILLATION
     Dosage: 0.125 PO QD, PRIOR TO ADMISSION
     Route: 048
  2. CARTIA XT [Suspect]
     Indication: ATRIAL FIBRILLATION
     Dosage: 300 MG PO QD
     Route: 048
  3. LUMIGAN [Concomitant]
  4. ISOPTO CARBACHOL [Concomitant]
  5. COUMADIN [Concomitant]
  6. NITROGLYCERIN [Concomitant]
  7. LASIX [Concomitant]
  8. LOPRESSOR [Concomitant]
  9. PROTONIX [Concomitant]
  10. PAXIL [Concomitant]
  11. PERCOCET [Concomitant]

REACTIONS (4)
  - BRADYCARDIA [None]
  - DYSPNOEA [None]
  - ELECTROCARDIOGRAM ST-T CHANGE [None]
  - FATIGUE [None]
